FAERS Safety Report 9216293 (Version 2)
Quarter: 2013Q2

REPORT INFORMATION
  Report Type: Spontaneous
  Country: SZ (occurrence: None)
  Receive Date: 20130403
  Receipt Date: 20130411
  Transmission Date: 20140414
  Serious: Yes (Hospitalization)
  Sender: FDA-Public Use
  Company Number: 2013-104

PATIENT
  Age: 60 Year
  Sex: Female

DRUGS (2)
  1. PRIALT (ZICONOTIDE) INTRATHECAL INFUSION [Suspect]
     Indication: NEURALGIA
     Route: 037
     Dates: start: 201206, end: 20121227
  2. PHENOBARBITAL (PHENOBARBITAL) [Suspect]

REACTIONS (4)
  - Coma [None]
  - Pneumonia [None]
  - Sepsis [None]
  - Drug interaction [None]
